FAERS Safety Report 13341536 (Version 1)
Quarter: 2017Q1

REPORT INFORMATION
  Report Type: Spontaneous
  Country: US (occurrence: US)
  Receive Date: 20170316
  Receipt Date: 20170316
  Transmission Date: 20170428
  Serious: No
  Sender: FDA-Public Use
  Company Number: US-ROCHE-1729057

PATIENT
  Age: 86 Year
  Sex: Male

DRUGS (6)
  1. ERIVEDGE [Suspect]
     Active Substance: VISMODEGIB
     Indication: BASAL CELL CARCINOMA
     Route: 065
     Dates: start: 20160304
  2. ATENOLOL. [Concomitant]
     Active Substance: ATENOLOL
  3. ADVIL [Concomitant]
     Active Substance: IBUPROFEN
  4. CLOPIDOGREL BISULFATE. [Concomitant]
     Active Substance: CLOPIDOGREL BISULFATE
  5. COLACE [Concomitant]
     Active Substance: DOCUSATE SODIUM
  6. ASPIR 81 [Concomitant]

REACTIONS (3)
  - Abdominal pain upper [Recovered/Resolved]
  - Cough [Unknown]
  - Vomiting [Unknown]

NARRATIVE: CASE EVENT DATE: 20160313
